FAERS Safety Report 4543241-5 (Version None)
Quarter: 2005Q1

REPORT INFORMATION
  Report Type: 
  Country: None (occurrence: None)
  Receive Date: 20050103
  Receipt Date: 20041220
  Transmission Date: 20050727
  Serious: Yes (Hospitalization)
  Sender: FDA-Public Use
  Company Number: DEWYE698913APR04

PATIENT
  Sex: Male
  Weight: 67 kg

DRUGS (9)
  1. ENBREL [Suspect]
     Indication: RHEUMATOID ARTHRITIS
     Route: 058
     Dates: start: 20040109, end: 20040329
  2. PANTOZOL [Concomitant]
     Route: 048
     Dates: start: 20030501
  3. BISOPROLOL FUMARATE [Concomitant]
     Route: 048
     Dates: start: 20040101
  4. CALCIUM CARBONATE [Concomitant]
     Route: 048
     Dates: start: 20030501
  5. FOSAMAX [Concomitant]
     Route: 048
     Dates: start: 20040101
  6. NEURONTIN [Concomitant]
     Route: 048
     Dates: start: 20040101
  7. ISOZID [Concomitant]
     Route: 048
     Dates: start: 20040101
  8. PREDNISOLONE [Concomitant]
     Indication: RHEUMATOID ARTHRITIS
     Route: 048
     Dates: start: 20031201
  9. DILTIAZEM HCL [Concomitant]
     Dosage: 180MG/DAY
     Route: 048
     Dates: start: 20040308

REACTIONS (3)
  - INFECTION [None]
  - PULMONARY VASCULITIS [None]
  - VOMITING [None]
